FAERS Safety Report 5176388-3 (Version None)
Quarter: 2006Q4

REPORT INFORMATION
  Report Type: 
  Country: None (occurrence: None)
  Receive Date: 20061215
  Receipt Date: 20061120
  Transmission Date: 20070319
  Serious: Yes (Other)
  Sender: FDA-Public Use
  Company Number: US-AMGEN-US200768

PATIENT
  Sex: Female

DRUGS (12)
  1. ARANESP [Suspect]
     Indication: RENAL FAILURE CHRONIC
     Route: 058
     Dates: start: 20061113, end: 20061113
  2. ATENOLOL [Concomitant]
  3. NEXIUM [Concomitant]
  4. REGLAN [Concomitant]
  5. LEVOTHROID [Concomitant]
  6. KLONOPIN [Concomitant]
  7. BENADRYL [Concomitant]
  8. CRESTOR [Concomitant]
  9. LOPID [Concomitant]
  10. FERROUS SULFATE TAB [Concomitant]
  11. ASPIRIN [Concomitant]
  12. FOLIC ACID [Concomitant]

REACTIONS (10)
  - BLINDNESS TRANSIENT [None]
  - BONE PAIN [None]
  - DIZZINESS [None]
  - DYSPNOEA [None]
  - EPISTAXIS [None]
  - FATIGUE [None]
  - FEELING ABNORMAL [None]
  - HYPERSENSITIVITY [None]
  - HYPERTENSION [None]
  - VERTIGO [None]
